FAERS Safety Report 26150829 (Version 1)
Quarter: 2025Q4

REPORT INFORMATION
  Report Type: Report from Study
  Country: US (occurrence: US)
  Receive Date: 20251212
  Receipt Date: 20251212
  Transmission Date: 20260117
  Serious: Yes (Other)
  Sender: ROCHE
  Company Number: US-ROCHE-10000452877

PATIENT
  Age: 7 Year
  Sex: Male

DRUGS (3)
  1. RITUXAN [Suspect]
     Active Substance: RITUXIMAB
     Indication: Focal segmental glomerulosclerosis
     Dosage: INFUSE 400MG INTRAVENOUSLY ON DAY(S) 1 AND DAY(S) 14 (REPEAT THIS DOSING AT A FREQUENCY DIRECTED BY?DOSE 10 MG
     Route: 042
  2. RITUXAN [Suspect]
     Active Substance: RITUXIMAB
     Indication: Nephrotic syndrome
  3. RITUXAN [Suspect]
     Active Substance: RITUXIMAB
     Indication: Hypoalbuminaemia

REACTIONS (2)
  - Nephrotic syndrome [Unknown]
  - Off label use [Unknown]
